FAERS Safety Report 9423934 (Version 2)
Quarter: 2013Q3

REPORT INFORMATION
  Report Type: Spontaneous
  Country: GB (occurrence: GB)
  Receive Date: 20130729
  Receipt Date: 20130814
  Transmission Date: 20140515
  Serious: Yes (Hospitalization)
  Sender: FDA-Public Use
  Company Number: GB-RANBAXY-2013R1-71465

PATIENT
  Age: 61 Year
  Sex: Male

DRUGS (1)
  1. CO-AMOXICLAV [Suspect]
     Indication: PROPHYLAXIS
     Dosage: 1 DF, TID
     Route: 065
     Dates: start: 20130506, end: 20130512

REACTIONS (8)
  - Abnormal faeces [Unknown]
  - Diarrhoea [Unknown]
  - Gastrooesophageal reflux disease [Unknown]
  - Eye colour change [Unknown]
  - Faeces pale [Unknown]
  - Jaundice [Not Recovered/Not Resolved]
  - Fatigue [Unknown]
  - Chromaturia [Unknown]
